FAERS Safety Report 5937133-4 (Version None)
Quarter: 2008Q4

REPORT INFORMATION
  Report Type: 
  Country: None (occurrence: None)
  Receive Date: 20081031
  Receipt Date: 20081024
  Transmission Date: 20090506
  Serious: Yes (Other)
  Sender: FDA-Public Use
  Company Number: PHHY2008AR25804

PATIENT
  Sex: Female

DRUGS (2)
  1. EXELON [Suspect]
     Dosage: 1.5 MG
     Dates: start: 20070919, end: 20080813
  2. EXELON [Suspect]
     Dosage: UNK
     Dates: start: 20080828

REACTIONS (3)
  - CARDIAC FAILURE [None]
  - PNEUMONIA [None]
  - PULMONARY OEDEMA [None]
